FAERS Safety Report 9131046 (Version 2)
Quarter: 2013Q1

REPORT INFORMATION
  Report Type: Report from Study
  Country: US (occurrence: US)
  Receive Date: 20130301
  Receipt Date: 20130327
  Transmission Date: 20140127
  Serious: Yes (Hospitalization)
  Sender: FDA-Public Use
  Company Number: US-JNJFOC-20130213936

PATIENT
  Age: 61 Year
  Sex: Male
  Weight: 79.52 kg

DRUGS (3)
  1. DOXORUBICIN HYDROCHLORIDE (DOXIL) [Suspect]
     Indication: MYCOSIS FUNGOIDES
     Route: 042
     Dates: start: 20080728, end: 20080728
  2. DOXORUBICIN HYDROCHLORIDE (DOXIL) [Suspect]
     Indication: MYCOSIS FUNGOIDES
     Route: 042
     Dates: start: 20081110, end: 20081110
  3. DOXORUBICIN HYDROCHLORIDE (DOXIL) [Suspect]
     Indication: MYCOSIS FUNGOIDES
     Route: 042
     Dates: start: 20080714, end: 20080714

REACTIONS (2)
  - Pain of skin [Unknown]
  - Infected skin ulcer [Unknown]
